FAERS Safety Report 20508264 (Version 2)
Quarter: 2022Q2

REPORT INFORMATION
  Report Type: Report from Study
  Country: CA (occurrence: CA)
  Receive Date: 20220223
  Receipt Date: 20220516
  Transmission Date: 20220721
  Serious: Yes (Other)
  Sender: FDA-Public Use
  Company Number: CA-UCBSA-2022009064

PATIENT
  Age: 46 Year
  Sex: Male

DRUGS (3)
  1. BRIVARACETAM [Suspect]
     Active Substance: BRIVARACETAM
     Indication: Product used for unknown indication
     Dosage: 50 MILLIGRAM, 3X/DAY (TID)
     Dates: start: 20190227
  2. BRIVARACETAM [Suspect]
     Active Substance: BRIVARACETAM
     Dosage: 50MG IN AM, 2 TABLETS 50MG IN PM AND HALF TABLET OF 100MG DAILY
  3. VIMPAT [Suspect]
     Active Substance: LACOSAMIDE
     Indication: Product used for unknown indication
     Dosage: 50 MILLIGRAM, 3X/DAY (TID)
     Dates: start: 20160413

REACTIONS (2)
  - Seizure [Unknown]
  - Off label use [Unknown]

NARRATIVE: CASE EVENT DATE: 20160413
